FAERS Safety Report 23690288 (Version 1)
Quarter: 2024Q2

REPORT INFORMATION
  Report Type: Spontaneous
  Country: ES (occurrence: ES)
  Receive Date: 20240401
  Receipt Date: 20240401
  Transmission Date: 20240715
  Serious: Yes (Hospitalization)
  Sender: FDA-Public Use
  Company Number: ES-JNJFOC-20240365369

PATIENT
  Age: 50 Year
  Sex: Male

DRUGS (1)
  1. PONVORY [Suspect]
     Active Substance: PONESIMOD
     Indication: Product used for unknown indication
     Route: 048
     Dates: start: 202303

REACTIONS (1)
  - Portal vein thrombosis [Recovered/Resolved]

NARRATIVE: CASE EVENT DATE: 20230601
